FAERS Safety Report 10215996 (Version 2)
Quarter: 2015Q2

REPORT INFORMATION
  Report Type: Spontaneous
  Country: US (occurrence: None)
  Receive Date: 20140602
  Receipt Date: 20150427
  Transmission Date: 20150821
  Serious: Yes (Hospitalization)
  Sender: FDA-Public Use
  Company Number: 1713747-2014-99977

PATIENT
  Age: 63 Year
  Sex: Male
  Weight: 87 kg

DRUGS (13)
  1. DELFLEX [Suspect]
     Active Substance: CALCIUM CHLORIDE\DEXTROSE MONOHYDRATE\MAGNESIUM CHLORIDE\SODIUM CHLORIDE\SODIUM LACTATE
     Indication: PERITONEAL DIALYSIS
     Route: 033
  2. FINASTERIDE. [Concomitant]
     Active Substance: FINASTERIDE
  3. ROCALTROL [Concomitant]
     Active Substance: CALCITRIOL
  4. FERREX [Concomitant]
  5. LIBERTY CYCLER [Concomitant]
     Active Substance: DEVICE
  6. SEVELAMER [Concomitant]
     Active Substance: SEVELAMER
  7. PROCRIT [Concomitant]
     Active Substance: ERYTHROPOIETIN
  8. ASPIRIN. [Concomitant]
     Active Substance: ASPIRIN
  9. HYDRALAZINE [Concomitant]
     Active Substance: HYDRALAZINE HYDROCHLORIDE
  10. LIBERTY CYCLER SET [Concomitant]
     Active Substance: DEVICE
  11. CARVEDILOL. [Concomitant]
     Active Substance: CARVEDILOL
  12. TAMSULOSIN [Concomitant]
     Active Substance: TAMSULOSIN
  13. NORVASC [Concomitant]
     Active Substance: AMLODIPINE BESYLATE

REACTIONS (2)
  - Inguinal hernia [None]
  - Testicular swelling [None]

NARRATIVE: CASE EVENT DATE: 20140502
